FAERS Safety Report 8121342-2 (Version None)
Quarter: 2012Q1

REPORT INFORMATION
  Report Type: 
  Country: None (occurrence: None)
  Receive Date: 20120206
  Receipt Date: 20120127
  Transmission Date: 20120608
  Serious: Yes (Other)
  Sender: FDA-Public Use
  Company Number: AUR-APL-2012-00701

PATIENT
  Sex: Female

DRUGS (2)
  1. ALENDRONIC ACID (ALENDRONIC ACID) [Suspect]
     Indication: PRODUCT USED FOR UNKNOWN INDICATION
     Dosage: 10 MG (70 MG, 1 IN 1 WK), ORAL
     Route: 048
     Dates: start: 20110101
  2. ALENDRONATE SODIUM [Suspect]
     Indication: PRODUCT USED FOR UNKNOWN INDICATION
     Dosage: 10 MG (70 MG, 1 IN 1 WK)

REACTIONS (2)
  - DRUG INEFFECTIVE [None]
  - PRODUCT LOT NUMBER ISSUE [None]
